FAERS Safety Report 4535324-0 (Version None)
Quarter: 2004Q4

REPORT INFORMATION
  Report Type: 
  Country: None (occurrence: None)
  Receive Date: 20041214
  Receipt Date: 20040915
  Transmission Date: 20050328
  Serious: No
  Sender: FDA-Public Use
  Company Number: 2004236612US

PATIENT
  Age: 70 Year
  Sex: Female
  Weight: 81.6 kg

DRUGS (14)
  1. BEXTRA [Suspect]
     Indication: MONARTHRITIS
     Dosage: 10 MG, QD, ORAL
     Route: 048
     Dates: start: 20040601, end: 20040901
  2. ACTOS [Concomitant]
  3. ACIPHEX [Concomitant]
  4. CLONIDINE [Concomitant]
  5. LYSINE [Concomitant]
  6. VICODIN [Concomitant]
  7. ALLEGRA-D [Concomitant]
  8. AMITRIPTYLINE [Concomitant]
  9. ZETIA [Concomitant]
  10. ASPIRIN [Concomitant]
  11. VALTREX [Concomitant]
  12. FIBERCON (POLYCARBOPHIL CALCIUM) [Concomitant]
  13. CALCIUM WITH VITAMIN D (CALCIUM SODIUM LACTATE, CALCIUM PHOSPHATE, ERG [Concomitant]
  14. LORAZEPAM [Concomitant]

REACTIONS (1)
  - BLISTER [None]
